FAERS Safety Report 24927725 (Version 1)
Quarter: 2025Q1

REPORT INFORMATION
  Report Type: Other
  Country: AT (occurrence: AT)
  Receive Date: 20250205
  Receipt Date: 20250205
  Transmission Date: 20250408
  Serious: Yes (Other)
  Sender: ALVOGEN
  Company Number: AT-ALVOGEN-2025096196

PATIENT
  Sex: Female

DRUGS (1)
  1. NIFEDIPINE [Suspect]
     Active Substance: NIFEDIPINE
     Indication: Tocolysis
     Route: 048

REACTIONS (5)
  - Pulmonary oedema [Unknown]
  - Hypotension [Unknown]
  - Tachycardia [Unknown]
  - Maternal exposure during pregnancy [Unknown]
  - Off label use [Unknown]
